FAERS Safety Report 23065104 (Version 1)
Quarter: 2023Q4

REPORT INFORMATION
  Report Type: Spontaneous
  Country: US (occurrence: None)
  Receive Date: 20231013
  Receipt Date: 20231013
  Transmission Date: 20240109
  Serious: Yes (Other)
  Sender: FDA-Public Use
  Company Number: None

PATIENT
  Age: 5 Year
  Sex: Male
  Weight: 63 kg

DRUGS (1)
  1. SINGULAIR [Suspect]
     Active Substance: MONTELUKAST SODIUM

REACTIONS (5)
  - Suicidal ideation [None]
  - Psychomotor hyperactivity [None]
  - Abdominal discomfort [None]
  - Nightmare [None]
  - Abnormal behaviour [None]

NARRATIVE: CASE EVENT DATE: 20230930
